FAERS Safety Report 20861877 (Version 1)
Quarter: 2022Q2

REPORT INFORMATION
  Report Type: Spontaneous
  Country: JP (occurrence: JP)
  Receive Date: 20220523
  Receipt Date: 20220523
  Transmission Date: 20220721
  Serious: Yes (Other)
  Sender: FDA-Public Use
  Company Number: JP-TAKEDA-2022TJP048688

PATIENT

DRUGS (1)
  1. ZEJULA [Suspect]
     Active Substance: NIRAPARIB
     Indication: Ovarian cancer recurrent
     Dosage: 300 MILLIGRAM, QD
     Route: 048
     Dates: start: 20220322, end: 20220509

REACTIONS (3)
  - Ovarian cancer recurrent [Unknown]
  - Disease progression [Unknown]
  - Metastasis [Unknown]
